FAERS Safety Report 24331155 (Version 1)
Quarter: 2024Q3

REPORT INFORMATION
  Report Type: Report from Study
  Country: IT (occurrence: IT)
  Receive Date: 20240918
  Receipt Date: 20240918
  Transmission Date: 20241016
  Serious: Yes (Other)
  Sender: TEVA
  Company Number: None

PATIENT
  Age: 45 Year
  Sex: Female

DRUGS (1)
  1. PACLITAXEL [Suspect]
     Active Substance: PACLITAXEL
     Indication: Breast cancer
     Dosage: 120 MG/7 DAYS, PACLITAXEL TEVA
     Route: 042
     Dates: start: 20240617, end: 20240625

REACTIONS (1)
  - Drug hypersensitivity [Recovered/Resolved]

NARRATIVE: CASE EVENT DATE: 20240625
